FAERS Safety Report 13052238 (Version 1)
Quarter: 2016Q4

REPORT INFORMATION
  Report Type: Spontaneous
  Country: SK (occurrence: SK)
  Receive Date: 20161221
  Receipt Date: 20161221
  Transmission Date: 20170207
  Serious: Yes (Other)
  Sender: FDA-Public Use
  Company Number: SK-BAYER-2016-235565

PATIENT
  Sex: Male

DRUGS (2)
  1. ASPIRIN. [Suspect]
     Active Substance: ASPIRIN
     Dosage: UNK
  2. TICAGRELOR [Interacting]
     Active Substance: TICAGRELOR
     Dosage: UNK

REACTIONS (4)
  - Haematemesis [None]
  - Labelled drug-drug interaction medication error [None]
  - Drug administration error [None]
  - Cardiogenic shock [None]
